FAERS Safety Report 10658741 (Version 1)
Quarter: 2014Q4

REPORT INFORMATION
  Report Type: Spontaneous
  Country: US (occurrence: None)
  Receive Date: 20141205
  Receipt Date: 20141205
  Transmission Date: 20150529
  Serious: Yes (Hospitalization)
  Sender: FDA-Public Use
  Company Number: 2014-08132

PATIENT
  Age: 50 Year
  Sex: Female
  Weight: 105 kg

DRUGS (22)
  1. TRAZODONE HYDROCHLORIDE (WATSON LABORATORIES) [Suspect]
     Active Substance: TRAZODONE HYDROCHLORIDE
     Indication: DEPRESSION
     Dosage: 100 MG, QHS
     Route: 048
     Dates: start: 20140206
  2. TOPIRAMATE (TOPIRAMATE) [Suspect]
     Active Substance: TOPIRAMATE
     Indication: PRODUCT USED FOR UNKNOWN INDICATION
     Route: 048
     Dates: start: 20140206
  3. LAMOTRIGINE. [Suspect]
     Active Substance: LAMOTRIGINE
     Indication: PRODUCT USED FOR UNKNOWN INDICATION
     Route: 048
     Dates: start: 20140206
  4. CYMBALTA [Concomitant]
     Active Substance: DULOXETINE HYDROCHLORIDE
  5. CLONAZEPAM (WATSON LABORATORIES) [Suspect]
     Active Substance: CLONAZEPAM
     Indication: DEPRESSION
     Dosage: 1 MG, QHS
     Route: 048
     Dates: start: 20140206
  6. SENOKOT/ (SENNA ALEXANDRINA) [Concomitant]
  7. ESTRADIOL (ESTRADIOL) [Concomitant]
  8. OXYCODONE/ACETAMINOPHEN (OXYCODONE HYDROCHLORIDE, PARACETAMOL) [Concomitant]
  9. FLEXERIL [Suspect]
     Active Substance: CYCLOBENZAPRINE HYDROCHLORIDE
     Indication: FIBROMYALGIA
     Route: 048
     Dates: start: 20140206
  10. LEVOTHYROXINE (LEVOTHYROXINE) [Concomitant]
     Active Substance: LEVOTHYROXINE
  11. ATIVAN [Suspect]
     Active Substance: LORAZEPAM
     Indication: DEPRESSION
     Route: 048
     Dates: start: 20140206
  12. LISINOPRIL  (LISINOPRIL DIHYDRATE) [Concomitant]
  13. PROGESTERONE (PROGESTERONE) [Concomitant]
  14. SEROQUEL [Suspect]
     Active Substance: QUETIAPINE FUMARATE
     Indication: PRODUCT USED FOR UNKNOWN INDICATION
     Route: 048
     Dates: start: 20140206
  15. FLEXERIL [Suspect]
     Active Substance: CYCLOBENZAPRINE HYDROCHLORIDE
     Indication: BACK PAIN
     Route: 048
     Dates: start: 20140206
  16. MELOXICAM (MELOXICAM) [Concomitant]
     Active Substance: MELOXICAM
  17. TESTOSTERONE (TESTOSTERONE) [Concomitant]
  18. NORCO (HYDROCODONE BITARTRATE, PARACETAMOL) [Concomitant]
  19. TIZANIDINE (TIZANIDINE) [Concomitant]
     Active Substance: TIZANIDINE
  20. NEURONTIN [Concomitant]
     Active Substance: GABAPENTIN
  21. ZOLPIDEM (ZOLPIDEM) [Concomitant]
     Active Substance: ZOLPIDEM TARTRATE
  22. CIPRODEX (CIPROFLOXACIN HYDROCHLORIDE) [Concomitant]

REACTIONS (1)
  - Psychotic disorder [None]

NARRATIVE: CASE EVENT DATE: 20140219
